FAERS Safety Report 19798723 (Version 1)
Quarter: 2021Q3

REPORT INFORMATION
  Report Type: Spontaneous
  Country: US (occurrence: US)
  Receive Date: 20210907
  Receipt Date: 20210907
  Transmission Date: 20211014
  Serious: Yes (Disabling)
  Sender: FDA-Public Use
  Company Number: None

PATIENT
  Age: 54 Year
  Sex: Male
  Weight: 105.75 kg

DRUGS (6)
  1. DULOXETINE. [Concomitant]
     Active Substance: DULOXETINE
  2. BUPROPION HYDROCHLORIDE XL [Suspect]
     Active Substance: BUPROPION HYDROCHLORIDE
     Indication: MAJOR DEPRESSION
     Dosage: ?          QUANTITY:1 TABLET(S);?
     Route: 048
     Dates: start: 20210820
  3. VITAMIN C SUPPLEMENT [Concomitant]
     Active Substance: ASCORBIC ACID
  4. CLONAZEPAM. [Concomitant]
     Active Substance: CLONAZEPAM
  5. TYLENOL [Concomitant]
     Active Substance: ACETAMINOPHEN
  6. ENERGENC [Concomitant]

REACTIONS (13)
  - Acne [None]
  - Product substitution issue [None]
  - Nausea [None]
  - Irritability [None]
  - Mood altered [None]
  - Flatulence [None]
  - Pain in jaw [None]
  - Non-24-hour sleep-wake disorder [None]
  - Chest discomfort [None]
  - Abdominal distension [None]
  - Arthralgia [None]
  - Skin irritation [None]
  - Aggression [None]

NARRATIVE: CASE EVENT DATE: 20210907
